FAERS Safety Report 17451317 (Version 1)
Quarter: 2020Q1

REPORT INFORMATION
  Report Type: Spontaneous
  Country: IT (occurrence: IT)
  Receive Date: 20200224
  Receipt Date: 20200224
  Transmission Date: 20200409
  Serious: Yes (Other)
  Sender: FDA-Public Use
  Company Number: NVSC2020IT043883

PATIENT
  Age: 54 Year
  Sex: Female

DRUGS (1)
  1. TASIGNA [Suspect]
     Active Substance: NILOTINIB
     Indication: PRODUCT USED FOR UNKNOWN INDICATION
     Dosage: 200 MG, QD
     Route: 048
     Dates: start: 20191023, end: 20191120

REACTIONS (4)
  - Skin burning sensation [Unknown]
  - Abdominal pain upper [Unknown]
  - Sensitive skin [Unknown]
  - Eczema [Unknown]

NARRATIVE: CASE EVENT DATE: 20191120
